FAERS Safety Report 7147978-3 (Version None)
Quarter: 2010Q4

REPORT INFORMATION
  Report Type: 
  Country: None (occurrence: None)
  Receive Date: 20101207
  Receipt Date: 20101207
  Transmission Date: 20110411
  Serious: Yes (Other)
  Sender: FDA-Public Use
  Company Number: None

PATIENT

DRUGS (1)
  1. MAGNEVIST [Suspect]
     Indication: COMPUTERISED TOMOGRAM
     Dosage: 20ML
     Dates: start: 20101206, end: 20101206

REACTIONS (2)
  - NAUSEA [None]
  - SNEEZING [None]
